FAERS Safety Report 4524834-8 (Version None)
Quarter: 2004Q4

REPORT INFORMATION
  Report Type: 
  Country: None (occurrence: None)
  Receive Date: 20041213
  Receipt Date: 20041206
  Transmission Date: 20050328
  Serious: Yes (Hospitalization, Other)
  Sender: FDA-Public Use
  Company Number: US-BRISTOL-MYERS SQUIBB COMPANY-12785812

PATIENT
  Age: 15 Year
  Sex: Male
  Weight: 64 kg

DRUGS (1)
  1. GLUCOPHAGE [Suspect]
     Route: 048
     Dates: start: 20041201, end: 20041201

REACTIONS (3)
  - INTENTIONAL OVERDOSE [None]
  - LACTIC ACIDOSIS [None]
  - SUICIDE ATTEMPT [None]
